FAERS Safety Report 15953523 (Version 2)
Quarter: 2019Q2

REPORT INFORMATION
  Report Type: Spontaneous
  Country: CY (occurrence: CY)
  Receive Date: 20190212
  Receipt Date: 20190529
  Transmission Date: 20190711
  Serious: Yes (Death, Hospitalization)
  Sender: FDA-Public Use
  Company Number: CY-PFIZER INC-2019057549

PATIENT
  Age: 76 Year
  Sex: Female

DRUGS (9)
  1. ZOLEDRONIC ACID [Suspect]
     Active Substance: ZOLEDRONIC ACID
     Indication: BREAST CANCER METASTATIC
     Dosage: 4 MG, MONTHLY
     Route: 042
     Dates: start: 20180911
  2. KISQALI [Suspect]
     Active Substance: RIBOCICLIB
     Indication: BREAST CANCER METASTATIC
     Dosage: 600 MG, 1X/DAY
     Route: 048
     Dates: start: 20181213, end: 20181231
  3. OSTEO ALFA [Concomitant]
  4. ASPIRIN (E.C.) [Concomitant]
     Active Substance: ASPIRIN
  5. CODEINE [Concomitant]
     Active Substance: CODEINE
  6. ACETAMINOPHEN. [Concomitant]
     Active Substance: ACETAMINOPHEN
  7. LETROZOLE. [Suspect]
     Active Substance: LETROZOLE
     Indication: BREAST CANCER METASTATIC
     Dosage: 2.5 MG, 1X/DAY
     Route: 048
     Dates: start: 20181214, end: 20181231
  8. CONTROLOC [Concomitant]
     Active Substance: PANTOPRAZOLE SODIUM
  9. STATIN [NYSTATIN] [Concomitant]
     Active Substance: NYSTATIN

REACTIONS (9)
  - Septic shock [Fatal]
  - Stomatitis [Fatal]
  - Hepatic enzyme increased [Fatal]
  - Jaundice [Fatal]
  - Mental disorder [Fatal]
  - Dysphagia [Fatal]
  - Neoplasm progression [Fatal]
  - Pyrexia [Fatal]
  - Fatigue [Fatal]

NARRATIVE: CASE EVENT DATE: 20181227
